FAERS Safety Report 6376705-2 (Version None)
Quarter: 2009Q3

REPORT INFORMATION
  Report Type: 
  Country: None (occurrence: None)
  Receive Date: 20090921
  Receipt Date: 20090831
  Transmission Date: 20100115
  Serious: Yes (Other)
  Sender: FDA-Public Use
  Company Number: WAES 0909USA01076

PATIENT
  Age: 57 Year
  Sex: Male

DRUGS (13)
  1. CRIXIVAN [Suspect]
     Indication: ANTIRETROVIRAL THERAPY
     Dosage: PO
     Route: 048
  2. SUSTIVA [Suspect]
     Indication: ANTIRETROVIRAL THERAPY
     Dosage: PO
     Route: 048
  3. DIDANOSINE [Suspect]
     Indication: ANTIRETROVIRAL THERAPY
  4. STAVUDINE [Suspect]
     Indication: ANTIRETROVIRAL THERAPY
  5. NELFINAVIR MESYLATE [Suspect]
     Indication: ANTIRETROVIRAL THERAPY
  6. NEVIRAPINE [Suspect]
     Indication: ANTIRETROVIRAL THERAPY
  7. LAMIVUDINE [Suspect]
     Indication: ANTIRETROVIRAL THERAPY
  8. LOPINAVIR [Suspect]
     Indication: ANTIRETROVIRAL THERAPY
  9. RITONAVIR [Suspect]
     Indication: ANTIRETROVIRAL THERAPY
  10. ZIDOVUDINE [Suspect]
     Indication: ANTIRETROVIRAL THERAPY
  11. SAQUINAVIR [Suspect]
     Indication: ANTIRETROVIRAL THERAPY
  12. EMTRICITABINE [Suspect]
     Indication: ANTIRETROVIRAL THERAPY
  13. TENOFOVIR DISOPROXIL FUMARATE [Suspect]
     Indication: ANTIRETROVIRAL THERAPY

REACTIONS (6)
  - ASPARTATE AMINOTRANSFERASE INCREASED [None]
  - BLOOD ALKALINE PHOSPHATASE INCREASED [None]
  - HAEMOGLOBIN DECREASED [None]
  - OESOPHAGEAL VARICES HAEMORRHAGE [None]
  - PORTAL HYPERTENSIVE GASTROPATHY [None]
  - SPLENOMEGALY [None]
